FAERS Safety Report 7900947-5 (Version None)
Quarter: 2011Q4

REPORT INFORMATION
  Report Type: 
  Country: None (occurrence: None)
  Receive Date: 20111108
  Receipt Date: 20111103
  Transmission Date: 20120403
  Serious: Yes (Hospitalization, Other)
  Sender: FDA-Public Use
  Company Number: DE-AMGEN-DEUSP2011057207

PATIENT
  Age: 49 Year
  Sex: Female
  Weight: 46 kg

DRUGS (5)
  1. PREDNISOLONE [Concomitant]
     Indication: CROHN'S DISEASE
     Dosage: UNK
     Route: 048
     Dates: start: 19840101
  2. PROLIA [Suspect]
     Indication: OSTEOPOROSIS
     Dosage: 60 MG, Q6MO
     Route: 058
     Dates: start: 20110331
  3. CORTISONE ACETATE [Concomitant]
     Indication: CROHN'S DISEASE
     Dosage: 5 MG, QOD
     Route: 048
     Dates: start: 19840101
  4. CALCIUM PHOSPHORICUM [Concomitant]
     Indication: OSTEOPOROSIS
     Dosage: UNK
     Route: 048
     Dates: start: 20050901
  5. DEKRISTOL [Concomitant]
     Indication: OSTEOPOROSIS
     Dosage: UNK UNK, Q2WK
     Route: 048

REACTIONS (2)
  - PERIRECTAL ABSCESS [None]
  - UTERINE HAEMORRHAGE [None]
